FAERS Safety Report 7064639-X (Version None)
Quarter: 2010Q4

REPORT INFORMATION
  Report Type: 
  Country: None (occurrence: None)
  Receive Date: 20101022
  Receipt Date: 20101022
  Transmission Date: 20110411
  Serious: Yes (Other)
  Sender: FDA-Public Use
  Company Number: None

PATIENT
  Sex: Male
  Weight: 79.3795 kg

DRUGS (1)
  1. ATENOLOL [Suspect]
     Indication: BLOOD PRESSURE INCREASED
     Dosage: 1/2 OF 25 MG TABLET ONCE PER DAY PO
     Route: 048
     Dates: start: 20020201, end: 20100901

REACTIONS (1)
  - NEUROPATHY PERIPHERAL [None]
